FAERS Safety Report 18483406 (Version 1)
Quarter: 2020Q4

REPORT INFORMATION
  Report Type: Spontaneous
  Country: US (occurrence: US)
  Receive Date: 20201109
  Receipt Date: 20201109
  Transmission Date: 20210114
  Serious: No
  Sender: FDA-Public Use
  Company Number: US-ROCHE-2587309

PATIENT
  Age: 23 Year
  Sex: Male

DRUGS (1)
  1. PULMOZYME [Suspect]
     Active Substance: DORNASE ALFA
     Indication: PRODUCT USED FOR UNKNOWN INDICATION
     Dosage: 2.5MG/2.5ML, FORM STRENGTH: 1MG/ML
     Route: 055
     Dates: start: 201009

REACTIONS (5)
  - Weight increased [Unknown]
  - Chest discomfort [Unknown]
  - Wheezing [Unknown]
  - Dyspnoea [Unknown]
  - Nasopharyngitis [Unknown]

NARRATIVE: CASE EVENT DATE: 20200205
